FAERS Safety Report 12987301 (Version 1)
Quarter: 2016Q4

REPORT INFORMATION
  Report Type: Spontaneous
  Country: US (occurrence: US)
  Receive Date: 20161130
  Receipt Date: 20161130
  Transmission Date: 20170207
  Serious: Yes (Other)
  Sender: FDA-Public Use
  Company Number: US-MALLINCKRODT-T201606024

PATIENT
  Sex: Female
  Weight: 59 kg

DRUGS (5)
  1. OXYCODONE [Suspect]
     Active Substance: OXYCODONE
     Indication: SPINAL FRACTURE
  2. OXYCODONE [Suspect]
     Active Substance: OXYCODONE
     Indication: SPINAL PAIN
     Route: 048
  3. FORTEO [Concomitant]
     Active Substance: TERIPARATIDE
  4. FASLODEX [Concomitant]
     Active Substance: FULVESTRANT
  5. OXYCODONE [Suspect]
     Active Substance: OXYCODONE
     Indication: PELVIC FRACTURE

REACTIONS (2)
  - Intestinal obstruction [Recovered/Resolved]
  - Vomiting [Recovered/Resolved]
